FAERS Safety Report 8059210-7 (Version None)
Quarter: 2012Q1

REPORT INFORMATION
  Report Type: 
  Country: None (occurrence: None)
  Receive Date: 20120120
  Receipt Date: 20120113
  Transmission Date: 20120608
  Serious: Yes (Other)
  Sender: FDA-Public Use
  Company Number: US-ABBOTT-11P-163-0845645-00

PATIENT
  Sex: Female
  Weight: 48.578 kg

DRUGS (7)
  1. CORTISONE ACETATE [Suspect]
     Indication: SINUS DISORDER
     Dates: start: 20111201
  2. PREDNISONE [Concomitant]
     Indication: PRODUCT USED FOR UNKNOWN INDICATION
  3. HUMIRA [Suspect]
     Indication: RHEUMATOID ARTHRITIS
     Route: 058
     Dates: start: 20110701, end: 20111201
  4. BISOPROLOL FUMARATE AND HYDROCHLOROTHIAZIDE [Suspect]
     Dosage: 5/6.25 MG - HALF TABLET
     Route: 048
     Dates: start: 20120101, end: 20120110
  5. BISOPROLOL FUMARATE AND HYDROCHLOROTHIAZIDE [Suspect]
     Indication: HYPERTENSION
     Dosage: 5/6.25 MG
     Route: 048
     Dates: start: 20111201, end: 20111201
  6. BISOPROLOL FUMARATE AND HYDROCHLOROTHIAZIDE [Suspect]
     Dosage: 5/6.25 MG - 1/4 TABLET
     Dates: start: 20120111
  7. LISINOPRIL [Suspect]
     Indication: HYPERTENSION
     Dates: start: 20111201

REACTIONS (12)
  - NASAL OPERATION [None]
  - RAYNAUD'S PHENOMENON [None]
  - RHINITIS [None]
  - HYPERTENSION [None]
  - DIZZINESS [None]
  - SCAR [None]
  - ARTHRALGIA [None]
  - SKIN DISCOLOURATION [None]
  - SINUSITIS [None]
  - SINUS HEADACHE [None]
  - BLOOD PRESSURE DECREASED [None]
  - NASAL OEDEMA [None]
